FAERS Safety Report 9928691 (Version 1)
Quarter: 2014Q1

REPORT INFORMATION
  Report Type: Spontaneous
  Country: FR (occurrence: FR)
  Receive Date: 20140227
  Receipt Date: 20140227
  Transmission Date: 20141002
  Serious: Yes (Other)
  Sender: FDA-Public Use
  Company Number: FR-SA-2014SA019599

PATIENT
  Age: 70 Year
  Sex: Female

DRUGS (6)
  1. TAXOTERE [Suspect]
     Indication: LUNG NEOPLASM MALIGNANT
     Route: 042
     Dates: start: 20131119, end: 20131119
  2. CISPLATINE [Concomitant]
     Dates: start: 20131119
  3. SOLUMEDROL [Concomitant]
  4. ZOPHREN [Concomitant]
  5. EMEND [Concomitant]
  6. PRIMPERAN [Concomitant]

REACTIONS (1)
  - Hepatocellular injury [Recovering/Resolving]
